FAERS Safety Report 8773385 (Version 2)
Quarter: 2013Q4

REPORT INFORMATION
  Report Type: Spontaneous
  Country: US (occurrence: US)
  Receive Date: 20120907
  Receipt Date: 20131101
  Transmission Date: 20140711
  Serious: No
  Sender: FDA-Public Use
  Company Number: US-009507513-1209USA000436

PATIENT
  Sex: Female

DRUGS (1)
  1. NUVARING [Suspect]
     Indication: CONTRACEPTION
     Dosage: 0.120 MG/DAY OF ETONOGESTREL AND 0.015 MG/DAY OF ETHINYL ESTRADIOL/21 DAYS
     Route: 067

REACTIONS (2)
  - Therapeutic response decreased [Unknown]
  - Product quality issue [Unknown]
